FAERS Safety Report 9920208 (Version 3)
Quarter: 2014Q2

REPORT INFORMATION
  Report Type: Spontaneous
  Country: US (occurrence: US)
  Receive Date: 20140224
  Receipt Date: 20140506
  Transmission Date: 20141212
  Serious: Yes (Other)
  Sender: FDA-Public Use
  Company Number: US-JNJFOC-20140107225

PATIENT
  Age: 66 Year
  Sex: Male
  Weight: 92.08 kg

DRUGS (12)
  1. REMICADE [Suspect]
     Indication: COLITIS ULCERATIVE
     Route: 042
     Dates: start: 20130311, end: 20131115
  2. IMURAN [Suspect]
     Indication: PRODUCT USED FOR UNKNOWN INDICATION
     Route: 065
  3. GLYBURIDE [Concomitant]
     Indication: DIABETES MELLITUS
     Dosage: BEFORE BREAKFAST
     Route: 048
  4. COLESTIPOL [Concomitant]
     Route: 048
  5. HCTZ [Concomitant]
     Indication: HYPERTENSION
     Route: 048
  6. LISINOPRIL [Concomitant]
     Indication: HYPERTENSION
     Route: 048
  7. METFORMIN [Concomitant]
     Indication: DIABETES MELLITUS
     Dosage: WITH EVENING MEAL
     Route: 048
  8. TAMSULOSIN [Concomitant]
     Indication: BENIGN PROSTATIC HYPERPLASIA
     Dosage: 1/2 HOUR FOLLOWING THE SAME MEAL
     Route: 048
  9. VERAPAMIL [Concomitant]
     Indication: HYPERTENSION
     Route: 048
  10. LANTUS [Concomitant]
     Indication: DIABETES MELLITUS
     Dosage: AS PER INSULIN PROTOCOL
     Route: 058
  11. COLAZAL [Concomitant]
     Indication: COLITIS ULCERATIVE
     Route: 048
  12. PREDNISONE [Concomitant]
     Indication: COLITIS ULCERATIVE
     Dosage: TAPERING DOSE.
     Route: 065

REACTIONS (22)
  - Rheumatic fever [Recovering/Resolving]
  - Colitis [Unknown]
  - Arthritis [Unknown]
  - Depression [Recovering/Resolving]
  - Liver function test abnormal [Unknown]
  - Glossodynia [Unknown]
  - Skin exfoliation [Unknown]
  - Dry skin [Unknown]
  - Muscle spasms [Unknown]
  - Pain [Unknown]
  - Pharyngitis streptococcal [Recovered/Resolved]
  - Abdominal pain [Unknown]
  - Frequent bowel movements [Unknown]
  - Pollakiuria [Unknown]
  - Diarrhoea [Unknown]
  - Headache [Unknown]
  - Stress [Unknown]
  - Haemorrhagic diathesis [Unknown]
  - Allergy to chemicals [Unknown]
  - Immunosuppression [Unknown]
  - Decreased appetite [Recovering/Resolving]
  - Melaena [Unknown]
